FAERS Safety Report 19133973 (Version 1)
Quarter: 2021Q2

REPORT INFORMATION
  Report Type: Spontaneous
  Country: US (occurrence: US)
  Receive Date: 20210414
  Receipt Date: 20210414
  Transmission Date: 20210717
  Serious: No
  Sender: FDA-Public Use
  Company Number: None

PATIENT
  Age: 77 Year
  Sex: Male
  Weight: 111.15 kg

DRUGS (1)
  1. BAMLANIVIMAB/ETESEVIMAB [Suspect]
     Active Substance: BAMLANIVIMAB\ETESEVIMAB
     Indication: COVID-19

REACTIONS (4)
  - Wrong technique in product usage process [None]
  - Product preparation error [None]
  - Extra dose administered [None]
  - Incorrect dose administered [None]

NARRATIVE: CASE EVENT DATE: 20210406
